FAERS Safety Report 17640202 (Version 2)
Quarter: 2020Q3

REPORT INFORMATION
  Report Type: Report from Study
  Country: US (occurrence: US)
  Receive Date: 20200408
  Receipt Date: 20200706
  Transmission Date: 20201102
  Serious: No
  Sender: FDA-Public Use
  Company Number: US-INCYTE CORPORATION-2020IN002526

PATIENT

DRUGS (2)
  1. JAKAFI [Suspect]
     Active Substance: RUXOLITINIB
     Dosage: 5 MILLIGRAM, Q12H
     Route: 048
     Dates: start: 201910
  2. JAKAFI [Suspect]
     Active Substance: RUXOLITINIB
     Indication: MYELOFIBROSIS
     Dosage: 5 MILLIGRAM, BID
     Route: 048

REACTIONS (2)
  - Pruritus [Recovered/Resolved]
  - Dry skin [Unknown]

NARRATIVE: CASE EVENT DATE: 20200414
